FAERS Safety Report 8114236-X (Version None)
Quarter: 2012Q1

REPORT INFORMATION
  Report Type: 
  Country: None (occurrence: None)
  Receive Date: 20120206
  Receipt Date: 20120125
  Transmission Date: 20120608
  Serious: Yes (Other)
  Sender: FDA-Public Use
  Company Number: SE-AMGEN-SWESP2011051375

PATIENT
  Age: 18 Year
  Sex: Male

DRUGS (8)
  1. METHOTREXATE SODIUM [Concomitant]
     Dosage: 10 MG/ML, UNK
  2. ALVEDON [Concomitant]
     Dosage: 500 MG, UNK
  3. ARTELAC                            /00002701/ [Concomitant]
     Dosage: UNK
  4. METHOTREXATE SODIUM [Concomitant]
     Dosage: 10 MG/ML, UNK
  5. ENBREL [Suspect]
     Indication: RHEUMATOID ARTHRITIS
  6. ENBREL [Suspect]
     Indication: JUVENILE ARTHRITIS
     Dosage: 50 MG, MONTHLY
     Route: 058
     Dates: start: 20090330, end: 20110823
  7. ALVEDON [Concomitant]
     Dosage: 500 MG, UNK
  8. VOLTAREN [Concomitant]
     Dosage: 50 MG, UNK

REACTIONS (1)
  - SKIN CANCER [None]
